FAERS Safety Report 8567825-2 (Version None)
Quarter: 2012Q3

REPORT INFORMATION
  Report Type: 
  Country: None (occurrence: None)
  Receive Date: 20120803
  Receipt Date: 20120730
  Transmission Date: 20120928
  Serious: Yes (Other)
  Sender: FDA-Public Use
  Company Number: JP-PFIZER INC-2012183566

PATIENT
  Age: 64 Year
  Sex: Female

DRUGS (1)
  1. RELPAX [Suspect]
     Indication: MIGRAINE
     Dosage: UNK
     Route: 048
     Dates: start: 20060101

REACTIONS (2)
  - SURGERY [None]
  - HEADACHE [None]
